FAERS Safety Report 15582075 (Version 2)
Quarter: 2019Q1

REPORT INFORMATION
  Report Type: Spontaneous
  Country: US (occurrence: US)
  Receive Date: 20181102
  Receipt Date: 20190207
  Transmission Date: 20190417
  Serious: No
  Sender: FDA-Public Use
  Company Number: US-RADIUS HEALTH INC.-2018US002417

PATIENT
  Age: 84 Year
  Sex: Female

DRUGS (2)
  1. TYMLOS [Suspect]
     Active Substance: ABALOPARATIDE
     Indication: OSTEOPOROSIS POSTMENOPAUSAL
     Dosage: UNK
     Dates: start: 20180801
  2. TYMLOS [Suspect]
     Active Substance: ABALOPARATIDE
     Dosage: UNK, 4 TIMES A WEEK

REACTIONS (4)
  - Muscle spasms [Unknown]
  - Gait disturbance [Unknown]
  - Pain in extremity [Unknown]
  - Off label use [Unknown]

NARRATIVE: CASE EVENT DATE: 20180831
